FAERS Safety Report 12442387 (Version 4)
Quarter: 2016Q3

REPORT INFORMATION
  Report Type: Report from Study
  Country: DE (occurrence: DE)
  Receive Date: 20160607
  Receipt Date: 20160812
  Transmission Date: 20161109
  Serious: Yes (Other)
  Sender: FDA-Public Use
  Company Number: PHHY2016DE076007

PATIENT
  Age: 56 Year
  Sex: Male
  Weight: 103 kg

DRUGS (4)
  1. FEBUXOSTAT. [Concomitant]
     Active Substance: FEBUXOSTAT
     Indication: GOUTY ARTHRITIS
     Dosage: 120 MG, QD
     Route: 048
     Dates: start: 20140101
  2. COLCHICINE. [Concomitant]
     Active Substance: COLCHICINE
     Indication: GOUTY ARTHRITIS
     Dosage: 0.5 MG, QD
     Route: 048
     Dates: start: 20150701, end: 20160218
  3. ILARIS [Suspect]
     Active Substance: CANAKINUMAB
     Indication: GOUTY ARTHRITIS
     Dosage: 150 MG, UNK (PER APPLICATION)
     Route: 058
     Dates: start: 20151118
  4. ARCOXIA [Concomitant]
     Active Substance: ETORICOXIB
     Indication: GOUTY ARTHRITIS
     Dosage: 90-120 MG, QD
     Route: 048
     Dates: start: 20120101, end: 20151119

REACTIONS (2)
  - Pruritus [Recovered/Resolved]
  - Respiratory tract infection [Unknown]

NARRATIVE: CASE EVENT DATE: 20160518
